FAERS Safety Report 22738427 (Version 3)
Quarter: 2023Q4

REPORT INFORMATION
  Report Type: Spontaneous
  Country: US (occurrence: US)
  Receive Date: 20230721
  Receipt Date: 20231128
  Transmission Date: 20240110
  Serious: No
  Sender: FDA-Public Use
  Company Number: US-PFIZER INC-PV202300124297

PATIENT
  Age: 49 Year
  Sex: Male

DRUGS (2)
  1. XELJANZ XR [Suspect]
     Active Substance: TOFACITINIB CITRATE
     Indication: Colitis ulcerative
     Dosage: 11 MG, 2X/DAY
     Route: 048
     Dates: start: 20230601
  2. XELJANZ XR [Suspect]
     Active Substance: TOFACITINIB CITRATE
     Dosage: 11 MG, 1X/DAY
     Route: 048
     Dates: start: 20230601

REACTIONS (6)
  - Off label use [Unknown]
  - Abdominal pain upper [Recovered/Resolved]
  - Abdominal discomfort [Unknown]
  - Frequent bowel movements [Recovered/Resolved]
  - Proctalgia [Recovered/Resolved]
  - Anorectal discomfort [Not Recovered/Not Resolved]

NARRATIVE: CASE EVENT DATE: 20230601
